FAERS Safety Report 13004811 (Version 1)
Quarter: 2016Q4

REPORT INFORMATION
  Report Type: Spontaneous
  Country: US (occurrence: US)
  Receive Date: 20161207
  Receipt Date: 20161207
  Transmission Date: 20170207
  Serious: Yes (Other)
  Sender: FDA-Public Use
  Company Number: US-CLINIGEN GROUP PLC/ CLINIGEN HEALTHCARE LTD-E2B_00001940

PATIENT
  Age: 59 Year
  Sex: Male
  Weight: 74 kg

DRUGS (8)
  1. ETHYOL [Suspect]
     Active Substance: AMIFOSTINE
     Indication: PROPHYLAXIS
     Dosage: 500 MG 5XWK  CONTINUING
     Route: 058
     Dates: start: 20031002
  2. FLUOXETINE [Concomitant]
     Active Substance: FLUOXETINE HYDROCHLORIDE
     Route: 065
  3. ATENOLOL. [Concomitant]
     Active Substance: ATENOLOL
     Dosage: 50 MG BID
     Route: 065
  4. RADIATION THERAPY [Suspect]
     Active Substance: RADIATION THERAPY
     Indication: PRODUCT USED FOR UNKNOWN INDICATION
     Dosage: 35 TREATMENTS  CONTINUING
     Route: 050
     Dates: start: 20031001
  5. MORPHINE [Concomitant]
     Active Substance: MORPHINE
     Dosage: QID
     Route: 065
  6. TYLENOL [Concomitant]
     Active Substance: ACETAMINOPHEN
     Dosage: PRN
     Route: 065
  7. COMBIVENT [Concomitant]
     Active Substance: ALBUTEROL SULFATE\IPRATROPIUM BROMIDE
     Dosage: QD
     Route: 065
  8. AMITRIPTYLINE [Concomitant]
     Active Substance: AMITRIPTYLINE
     Dosage: 50 MG QD
     Route: 065

REACTIONS (7)
  - Pyrexia [Unknown]
  - Hyperhidrosis [Unknown]
  - Staphylococcal infection [Unknown]
  - Injection site pain [Unknown]
  - Injection site erythema [Unknown]
  - Injection site oedema [Unknown]
  - Cold sweat [Unknown]

NARRATIVE: CASE EVENT DATE: 20031009
